FAERS Safety Report 24250847 (Version 1)
Quarter: 2024Q3

REPORT INFORMATION
  Report Type: Spontaneous
  Country: ES (occurrence: None)
  Receive Date: 20240826
  Receipt Date: 20240826
  Transmission Date: 20241016
  Serious: Yes (Hospitalization, Other)
  Sender: ASTRAZENECA
  Company Number: 2024A193896

PATIENT
  Age: 19 Year
  Sex: Female

DRUGS (8)
  1. QUETIAPINE [Interacting]
     Active Substance: QUETIAPINE
     Indication: Suicide attempt
     Dosage: 350MG SINGLE DOSE, AFTER INGESTION OF 14 TABLETS OF QUETIAPINE 25MG ORALLY APPROXIMATELY 1-2 HOUR...
     Dates: start: 20231125, end: 20240404
  2. CLOTHIAPINE [Interacting]
     Active Substance: CLOTHIAPINE
     Indication: Suicide attempt
     Dosage: 120MG SINGLE DOSE/SHE REPORTS HAVING TAKEN MULTIPLE CLOTIAPINE AND QUETIAPINE TABLETS, AROUND 3-4...
     Dates: start: 20240201, end: 20240404
  3. GABAPENTIN [Concomitant]
     Active Substance: GABAPENTIN
     Indication: Bipolar I disorder
     Dosage: 800MG EVERY 12 HOURS 2-0-0-2
     Dates: start: 20231120, end: 20240404
  4. FLUOXETINE [Concomitant]
     Active Substance: FLUOXETINE HYDROCHLORIDE
     Indication: Bipolar I disorder
     Dosage: 60MG PER DAY, 3-0-0-0
     Dates: start: 20240201, end: 20240404
  5. CANNABIS SATIVA SUBSP. INDICA TOP [Concomitant]
     Active Substance: CANNABIS SATIVA SUBSP. INDICA TOP
  6. ALCOHOL [Concomitant]
     Active Substance: ALCOHOL
     Indication: Anxiolytic therapy
  7. CLONAZEPAM [Concomitant]
     Active Substance: CLONAZEPAM
     Dosage: 1-0-1-0 (BREAKFAST AND SNACK)2.0MG UNKNOWN
     Dates: start: 20240304
  8. ALPRAZOLAM [Concomitant]
     Active Substance: ALPRAZOLAM
     Dosage: 1MG AS FIRST STEP

REACTIONS (4)
  - Somnolence [Recovered/Resolved]
  - Suicide attempt [Unknown]
  - Overdose [Unknown]
  - Drug interaction [Unknown]

NARRATIVE: CASE EVENT DATE: 20240404
